FAERS Safety Report 7687173-2 (Version None)
Quarter: 2011Q3

REPORT INFORMATION
  Report Type: 
  Country: None (occurrence: None)
  Receive Date: 20110816
  Receipt Date: 20110815
  Transmission Date: 20111222
  Serious: Yes (Hospitalization, Other)
  Sender: FDA-Public Use
  Company Number: AU-GENZYME-THYM-1002672

PATIENT
  Sex: Male
  Weight: 82.3 kg

DRUGS (11)
  1. CYTARABINE [Suspect]
     Indication: STEM CELL TRANSPLANT
     Dosage: UNK
  2. BACTRIM [Concomitant]
     Indication: PROPHYLAXIS
     Dosage: 800 MG, BID
     Route: 048
     Dates: start: 20100901
  3. FLUDARA [Suspect]
     Indication: STEM CELL TRANSPLANT
     Route: 065
  4. BACTRIM [Concomitant]
     Dosage: 160 MG, BID
     Route: 048
     Dates: start: 20100901
  5. AZATHIOPRINE [Concomitant]
     Indication: GRAFT VERSUS HOST DISEASE
     Dosage: 50 MG, BID
     Route: 048
     Dates: start: 20100501
  6. POSACONAZOLE [Concomitant]
     Indication: ANTIFUNGAL PROPHYLAXIS
     Dosage: 200 MG, TID
     Route: 048
     Dates: start: 20100801
  7. THYMOGLOBULIN [Suspect]
     Indication: STEM CELL TRANSPLANT
     Dosage: 2 MG/KG, QD
     Route: 042
     Dates: start: 20100816, end: 20100817
  8. THYMOGLOBULIN [Suspect]
     Dosage: 0.5 MG/KG, QD
     Route: 042
     Dates: start: 20100818, end: 20100818
  9. VALTREX [Concomitant]
     Indication: ANTIVIRAL PROPHYLAXIS
     Dosage: 500 MG, QD
     Route: 048
     Dates: start: 20110201
  10. OMEPRAZOLE [Concomitant]
     Indication: PROPHYLAXIS
     Dosage: 40 MG, QD
     Route: 048
     Dates: start: 20100901
  11. PREDNISOLONE [Concomitant]
     Indication: GRAFT VERSUS HOST DISEASE
     Dosage: 12.5 MG, BID
     Route: 048
     Dates: start: 20100901

REACTIONS (3)
  - GRAFT VERSUS HOST DISEASE [None]
  - ARTHRALGIA [None]
  - FOOD ALLERGY [None]
